FAERS Safety Report 10081898 (Version 7)
Quarter: 2016Q3

REPORT INFORMATION
  Report Type: Spontaneous
  Country: US (occurrence: US)
  Receive Date: 20140416
  Receipt Date: 20160811
  Transmission Date: 20161108
  Serious: Yes (Hospitalization, Other)
  Sender: FDA-Public Use
  Company Number: US-GLAXOSMITHKLINE-A1068692A

PATIENT
  Age: 70 Year
  Sex: Female

DRUGS (24)
  1. ALBUTEROL INHALER [Concomitant]
     Active Substance: ALBUTEROL
  2. CARVEDILOL. [Concomitant]
     Active Substance: CARVEDILOL
  3. DIGOXIN. [Concomitant]
     Active Substance: DIGOXIN
  4. ISOSORBIDE. [Concomitant]
     Active Substance: ISOSORBIDE
  5. K-DUR [Concomitant]
     Active Substance: POTASSIUM CHLORIDE
  6. LORTAB [Concomitant]
     Active Substance: ACETAMINOPHEN\HYDROCODONE BITARTRATE
  7. THEOPHYLLINE ANHYDROUS. [Concomitant]
     Active Substance: THEOPHYLLINE ANHYDROUS
  8. ADVAIR HFA [Suspect]
     Active Substance: FLUTICASONE PROPIONATE\SALMETEROL XINAFOATE
     Dosage: UNK
     Dates: start: 2000
  9. ALBUTEROL NEBULIZER [Concomitant]
     Active Substance: ALBUTEROL
  10. FLUTICASONE NASAL SPRAY [Concomitant]
     Active Substance: FLUTICASONE\FLUTICASONE PROPIONATE
  11. OYSTER SHELL CALCIUM + VITAMIN D [Concomitant]
     Active Substance: CALCIUM\VITAMIN D
  12. ADVAIR HFA [Suspect]
     Active Substance: FLUTICASONE PROPIONATE\SALMETEROL XINAFOATE
     Dosage: UNK
     Dates: start: 2000
  13. IPRATROPIUM BROMIDE + SALBUTAMOL [Concomitant]
     Active Substance: ALBUTEROL\IPRATROPIUM BROMIDE
  14. LACTULOSE. [Concomitant]
     Active Substance: LACTULOSE
  15. FUROSEMIDE. [Concomitant]
     Active Substance: FUROSEMIDE
  16. ADVAIR HFA [Suspect]
     Active Substance: FLUTICASONE PROPIONATE\SALMETEROL XINAFOATE
     Indication: PNEUMONIA
     Dosage: 250/50; USED TO TAKE 2 TIMES DAILY BUT SWITCHED TO ONCE DAILY WHEN STARTED SPIRIVA IN 2007 (TAK[...]
     Route: 055
     Dates: start: 2000
  17. ADVAIR HFA [Suspect]
     Active Substance: FLUTICASONE PROPIONATE\SALMETEROL XINAFOATE
     Indication: ASTHMA
     Dosage: UNK
     Dates: start: 2000
  18. SPIRIVA [Suspect]
     Active Substance: TIOTROPIUM BROMIDE MONOHYDRATE
     Indication: PRODUCT USED FOR UNKNOWN INDICATION
     Dosage: TAKES ONE DOSE OF SPIRIVA AT NIGHT AND ONE DOSE OF ADVAIR IN THE MORNING.
     Route: 065
     Dates: start: 2007
  19. DOCUSATE [Concomitant]
     Active Substance: DOCUSATE
  20. ADVAIR HFA [Suspect]
     Active Substance: FLUTICASONE PROPIONATE\SALMETEROL XINAFOATE
     Indication: CHRONIC OBSTRUCTIVE PULMONARY DISEASE
     Dosage: UNK UNK, QD
     Dates: start: 2000
  21. COUMADIN [Concomitant]
     Active Substance: WARFARIN SODIUM
  22. MUCINEX [Concomitant]
     Active Substance: GUAIFENESIN
  23. OMEPRAZOLE. [Concomitant]
     Active Substance: OMEPRAZOLE
  24. SALMETEROL [Concomitant]
     Active Substance: SALMETEROL

REACTIONS (10)
  - Pneumonia [Recovered/Resolved]
  - Apparent death [Recovered/Resolved]
  - Lung neoplasm malignant [Unknown]
  - Muscular weakness [Unknown]
  - Transient ischaemic attack [Unknown]
  - Lung infection [Unknown]
  - Inappropriate schedule of drug administration [Unknown]
  - Pneumonectomy [Recovered/Resolved]
  - Myocardial infarction [Recovered/Resolved]
  - Underdose [Unknown]

NARRATIVE: CASE EVENT DATE: 2008
